FAERS Safety Report 5476183-1 (Version None)
Quarter: 2007Q4

REPORT INFORMATION
  Report Type: 
  Country: None (occurrence: None)
  Receive Date: 20071003
  Receipt Date: 20070924
  Transmission Date: 20080405
  Serious: Yes (Hospitalization)
  Sender: FDA-Public Use
  Company Number: GB-ASTRAZENECA-2007AC01870

PATIENT
  Age: 76 Year
  Sex: Female

DRUGS (5)
  1. OMEPRAZOLE [Suspect]
  2. PROPRANOLOL [Interacting]
     Indication: ESSENTIAL TREMOR
  3. PROPRANOLOL [Interacting]
     Indication: ANXIETY
  4. DONEPEZIL HCL [Interacting]
  5. ESCITALOPRAM OXALATE [Interacting]

REACTIONS (2)
  - DRUG INTERACTION [None]
  - TORSADE DE POINTES [None]
